FAERS Safety Report 9740868 (Version 1)
Quarter: 2013Q4

REPORT INFORMATION
  Report Type: Spontaneous
  Country: US (occurrence: US)
  Receive Date: 20131209
  Receipt Date: 20131209
  Transmission Date: 20140711
  Serious: No
  Sender: FDA-Public Use
  Company Number: US-BIOGENIDEC-2013BI100781

PATIENT
  Age: 46 Year
  Sex: Male

DRUGS (11)
  1. TECFIDERA [Suspect]
     Indication: MULTIPLE SCLEROSIS
     Route: 048
     Dates: start: 20130812
  2. MICARDIS [Concomitant]
  3. LORTAB [Concomitant]
  4. VITAMIN D [Concomitant]
  5. MOTRIN [Concomitant]
  6. BACLOFEN [Concomitant]
  7. CELEXA [Concomitant]
  8. COLACE [Concomitant]
  9. NEXIUM [Concomitant]
  10. FLEXERIL [Concomitant]
  11. ULTRAM ER [Concomitant]

REACTIONS (2)
  - Dizziness [Unknown]
  - Fall [Recovered/Resolved]
